FAERS Safety Report 11111898 (Version 1)
Quarter: 2015Q2

REPORT INFORMATION
  Report Type: Spontaneous
  Country: US (occurrence: None)
  Receive Date: 20150513
  Receipt Date: 20150513
  Transmission Date: 20150821
  Serious: No
  Sender: FDA-Public Use
  Company Number: None

PATIENT
  Age: 51 Year
  Sex: Female
  Weight: 56.7 kg

DRUGS (2)
  1. ALINIA [Suspect]
     Active Substance: NITAZOXANIDE
     Dosage: 1 TABLET, TWICE DAILY, TAKEN BY MOUTH
     Route: 048
     Dates: start: 20150430, end: 20150509
  2. ORTHO NOVUM [Concomitant]
     Active Substance: MESTRANOL\NORETHINDRONE

REACTIONS (7)
  - Hyperhidrosis [None]
  - Nausea [None]
  - Pruritus generalised [None]
  - Dizziness [None]
  - Yellow skin [None]
  - Dysgeusia [None]
  - Chromaturia [None]

NARRATIVE: CASE EVENT DATE: 20150429
